FAERS Safety Report 8214331-0 (Version None)
Quarter: 2012Q1

REPORT INFORMATION
  Report Type: 
  Country: None (occurrence: None)
  Receive Date: 20120316
  Receipt Date: 20120308
  Transmission Date: 20120608
  Serious: Yes (Other)
  Sender: FDA-Public Use
  Company Number: US-BAYER-2012-014312

PATIENT
  Age: 22 Year
  Sex: Female

DRUGS (8)
  1. ALDARA [Concomitant]
  2. YAZ [Suspect]
     Dosage: UNK
     Dates: start: 20050401
  3. CELEBREX [Concomitant]
     Dosage: 200 MG, DAILY
     Route: 048
  4. MULTI-VITAMINS [Concomitant]
  5. TOPROL-XL [Concomitant]
  6. YASMIN [Suspect]
     Dosage: UNK
     Dates: start: 20050401
  7. INDERAL [Concomitant]
     Dosage: 60 MG, DAILY
     Route: 048
  8. VICODIN [Concomitant]
     Dosage: 1-2 TABLETS EVERY 6 HOURS OR AS NEEDED
     Route: 048

REACTIONS (2)
  - DEEP VEIN THROMBOSIS [None]
  - PULMONARY EMBOLISM [None]
